FAERS Safety Report 14812535 (Version 1)
Quarter: 2018Q2

REPORT INFORMATION
  Report Type: Report from Study
  Country: None (occurrence: US)
  Receive Date: 20180425
  Receipt Date: 20180425
  Transmission Date: 20180711
  Serious: Yes (Other)
  Sender: FDA-Public Use
  Company Number: US-BAUSCH-BL-2018-011817

PATIENT
  Sex: Male

DRUGS (1)
  1. CUPRIMINE [Suspect]
     Active Substance: PENICILLAMINE
     Indication: NEPHROLITHIASIS
     Dosage: STARTED MANY YEARS AGO
     Route: 048

REACTIONS (4)
  - Dementia with Lewy bodies [Not Recovered/Not Resolved]
  - Drug effect incomplete [Not Recovered/Not Resolved]
  - Off label use [Not Recovered/Not Resolved]
  - Parkinson^s disease [Not Recovered/Not Resolved]
